FAERS Safety Report 13645729 (Version 2)
Quarter: 2017Q3

REPORT INFORMATION
  Report Type: Spontaneous
  Country: JP (occurrence: JP)
  Receive Date: 20170613
  Receipt Date: 20170711
  Transmission Date: 20171127
  Serious: Yes (Other)
  Sender: FDA-Public Use
  Company Number: JP-ROCHE-1946414

PATIENT
  Age: 63 Year
  Sex: Male
  Weight: 61.7 kg

DRUGS (3)
  1. PREDNISOLONE. [Concomitant]
     Active Substance: PREDNISOLONE
     Indication: BRONCHOPULMONARY ASPERGILLOSIS ALLERGIC
     Dosage: UNK
     Route: 065
  2. ITRACONAZOLE. [Concomitant]
     Active Substance: ITRACONAZOLE
     Indication: BRONCHOPULMONARY ASPERGILLOSIS ALLERGIC
     Route: 065
  3. XOLAIR [Suspect]
     Active Substance: OMALIZUMAB
     Indication: ASTHMA
     Route: 058
     Dates: start: 201308, end: 201401

REACTIONS (7)
  - Lung infiltration [Unknown]
  - Pneumonia [Recovering/Resolving]
  - Incision site oedema [Recovering/Resolving]
  - Hypoventilation [Recovering/Resolving]
  - Tracheal stenosis [Recovering/Resolving]
  - Asthma [Recovering/Resolving]
  - Incision site haemorrhage [Recovering/Resolving]

NARRATIVE: CASE EVENT DATE: 20150828
